FAERS Safety Report 21589539 (Version 3)
Quarter: 2022Q4

REPORT INFORMATION
  Report Type: Report from Study
  Country: CA (occurrence: CA)
  Receive Date: 20221114
  Receipt Date: 20221220
  Transmission Date: 20230113
  Serious: Yes (Other)
  Sender: FDA-Public Use
  Company Number: CA-MYLANLABS-2022M1030289

PATIENT
  Age: 62 Year
  Sex: Female

DRUGS (4)
  1. HULIO [Suspect]
     Active Substance: ADALIMUMAB-FKJP
     Indication: Rheumatoid arthritis
     Dosage: 40 MILLIGRAM, QW (40MG Q WEEKLY X 4 WEEKS)
     Route: 065
  2. HULIO [Suspect]
     Active Substance: ADALIMUMAB-FKJP
     Dosage: 40 MILLIGRAM, BIWEEKLY (40 MILLIGRAM, EVERY 14 DAYS)
     Route: 058
     Dates: start: 20220414
  3. HULIO [Suspect]
     Active Substance: ADALIMUMAB-FKJP
     Dosage: 4 MILLIGRAM, QW (WEEKLY)
     Route: 058
     Dates: start: 20220414
  4. HULIO [Suspect]
     Active Substance: ADALIMUMAB-FKJP
     Dosage: 40 MILLIGRAM
     Route: 058
     Dates: start: 20220414

REACTIONS (3)
  - Rheumatoid arthritis [Unknown]
  - Off label use [Unknown]
  - Wrong technique in product usage process [Unknown]
